FAERS Safety Report 24744002 (Version 1)
Quarter: 2024Q4

REPORT INFORMATION
  Report Type: Spontaneous
  Country: US (occurrence: US)
  Receive Date: 20241217
  Receipt Date: 20241217
  Transmission Date: 20250114
  Serious: Yes (Other)
  Sender: AMGEN
  Company Number: US-AMGEN-USASP2024243911

PATIENT
  Sex: Male

DRUGS (13)
  1. RAVICTI [Suspect]
     Active Substance: GLYCEROL PHENYLBUTYRATE
     Indication: Urea cycle disorder
     Dosage: 6.8 MILLILITER, TID (TAKE WITH FOOD.)
     Route: 065
  2. HYDROXYZINE HYDROCHLORIDE [Concomitant]
     Active Substance: HYDROXYZINE HYDROCHLORIDE
     Dosage: 10 MILLIGRAM
     Route: 065
  3. ESCITALOPRAM OXALATE [Concomitant]
     Active Substance: ESCITALOPRAM OXALATE
     Dosage: 10 MILLIGRAM
     Route: 065
  4. GUANFACINE HYDROCHLORIDE [Concomitant]
     Active Substance: GUANFACINE HYDROCHLORIDE
     Dosage: 1 MILLIGRAM
     Route: 065
  5. LEVETIRACETAM [Concomitant]
     Active Substance: LEVETIRACETAM
     Dosage: 100 MILLIGRAM PER MILLILITRE
     Route: 065
  6. ISOLEUCINE [Concomitant]
     Active Substance: ISOLEUCINE
     Dosage: UNK
     Route: 065
  7. LEUCINE [Concomitant]
     Active Substance: LEUCINE
     Dosage: UNK (0.1G-15/4G POWD PACK)
     Route: 065
  8. VALINE [Concomitant]
     Active Substance: VALINE
     Dosage: 1000 UNK (1 G/4 G POWD PACK)
     Route: 065
  9. VITAMIN D3 [Concomitant]
     Active Substance: CHOLECALCIFEROL
     Dosage: UNK
     Route: 065
  10. MEPHYTON [Concomitant]
     Active Substance: PHYTONADIONE
     Dosage: 5 MILLIGRAM
     Route: 065
  11. VITAMIN D2 [Concomitant]
     Active Substance: ERGOCALCIFEROL
     Dosage: 50 MICROGRAM
     Route: 065
  12. PHYTONADIONE [Concomitant]
     Active Substance: PHYTONADIONE
     Dosage: 5 MILLIGRAM
     Route: 065
  13. DIASTAT ACUDIAL [Concomitant]
     Active Substance: DIAZEPAM
     Dosage: UNK (5-7.5-1 0MG KIT)
     Route: 065

REACTIONS (2)
  - Nephrolithiasis [Unknown]
  - Product dose omission issue [Unknown]
